FAERS Safety Report 13792410 (Version 1)
Quarter: 2017Q2

REPORT INFORMATION
  Report Type: Spontaneous
  Country: US (occurrence: US)
  Receive Date: 20170519
  Receipt Date: 20170519
  Transmission Date: 20170830
  Serious: Yes (Life-Threatening, Other)
  Sender: FDA-Public Use
  Company Number: None

PATIENT
  Age: 54 Year
  Sex: Female
  Weight: 72 kg

DRUGS (2)
  1. TESTOSTERONE PELLETS [Suspect]
     Active Substance: TESTOSTERONE
     Indication: FATIGUE
     Dosage: ?          QUANTITY:1 PELLET;OTHER FREQUENCY:3 MONTH;?
     Route: 058
  2. TESTOSTERONE PELLETS [Suspect]
     Active Substance: TESTOSTERONE
     Indication: ASTHENIA
     Dosage: ?          QUANTITY:1 PELLET;OTHER FREQUENCY:3 MONTH;?
     Route: 058

REACTIONS (9)
  - Nausea [None]
  - Insomnia [None]
  - Palpitations [None]
  - Dizziness [None]
  - Blood pressure increased [None]
  - Blood testosterone increased [None]
  - Heart rate increased [None]
  - Anxiety [None]
  - Chest pain [None]

NARRATIVE: CASE EVENT DATE: 20170419
